FAERS Safety Report 10169698 (Version 2)
Quarter: 2014Q2

REPORT INFORMATION
  Report Type: Spontaneous
  Country: NL (occurrence: NL)
  Receive Date: 20140513
  Receipt Date: 20140625
  Transmission Date: 20141212
  Serious: Yes (Other)
  Sender: FDA-Public Use
  Company Number: NL-PFIZER INC-2014127545

PATIENT
  Sex: 0

DRUGS (1)
  1. LYRICA [Suspect]
     Indication: DRUG DEPENDENCE
     Dosage: UNK

REACTIONS (1)
  - Drug abuse [Unknown]
